FAERS Safety Report 7519567-X (Version None)
Quarter: 2011Q2

REPORT INFORMATION
  Report Type: 
  Country: None (occurrence: None)
  Receive Date: 20110602
  Receipt Date: 20110531
  Transmission Date: 20111010
  Serious: Yes (Other)
  Sender: FDA-Public Use
  Company Number: US-PERRIGO-11US003703

PATIENT
  Sex: Male
  Weight: 92.971 kg

DRUGS (2)
  1. DIPHENHYDRAMINE HCL [Suspect]
     Indication: NASAL CONGESTION
     Dosage: 20 ML, QD
     Route: 048
     Dates: start: 20110316, end: 20110322
  2. ZOCOR [Concomitant]
     Indication: BLOOD CHOLESTEROL INCREASED
     Dosage: 40 MG, QD
     Route: 048

REACTIONS (3)
  - PRURITUS [None]
  - URTICARIA [None]
  - SKIN CANCER [None]
